FAERS Safety Report 6743851-0 (Version None)
Quarter: 2010Q2

REPORT INFORMATION
  Report Type: 
  Country: None (occurrence: None)
  Receive Date: 20100527
  Receipt Date: 20100406
  Transmission Date: 20101027
  Serious: No
  Sender: FDA-Public Use
  Company Number: US-KINGPHARMUSA00001-K201000408

PATIENT
  Sex: Male

DRUGS (1)
  1. FLECTOR [Suspect]
     Dosage: 1 PATCH, UNK
     Route: 061

REACTIONS (5)
  - ABDOMINAL PAIN [None]
  - BLOOD PRESSURE ABNORMAL [None]
  - DIARRHOEA [None]
  - HEART RATE IRREGULAR [None]
  - TONGUE DISCOLOURATION [None]
